FAERS Safety Report 11561822 (Version 1)
Quarter: 2015Q3

REPORT INFORMATION
  Report Type: Spontaneous
  Country: US (occurrence: US)
  Receive Date: 20150916
  Receipt Date: 20150916
  Transmission Date: 20151125
  Serious: No
  Sender: FDA-Public Use
  Company Number: US-ELI_LILLY_AND_COMPANY-US200811002671

PATIENT
  Age: 57 Year
  Sex: Female

DRUGS (2)
  1. FORTEO [Suspect]
     Active Substance: TERIPARATIDE
     Indication: BONE DISORDER
     Dosage: UNK, UNK
     Dates: start: 200704
  2. FORTEO [Suspect]
     Active Substance: TERIPARATIDE

REACTIONS (8)
  - Systemic lupus erythematosus [Unknown]
  - Pain in extremity [Not Recovered/Not Resolved]
  - Lower limb fracture [Unknown]
  - Muscle strain [Unknown]
  - Arthralgia [Not Recovered/Not Resolved]
  - Fall [Recovered/Resolved with Sequelae]
  - Fall [Unknown]
  - Chest pain [Unknown]

NARRATIVE: CASE EVENT DATE: 20081031
